FAERS Safety Report 14934939 (Version 1)
Quarter: 2018Q2

REPORT INFORMATION
  Report Type: Spontaneous
  Country: US (occurrence: US)
  Receive Date: 20180506
  Receipt Date: 20180506
  Transmission Date: 20180711
  Serious: Yes (Disabling, Other)
  Sender: FDA-Public Use
  Company Number: None

PATIENT
  Age: 59 Year
  Sex: Female
  Weight: 76.05 kg

DRUGS (4)
  1. LEVOFLOXACIN 500 MG ZYD SUB FOR LIVAQUIN 500 MG [Suspect]
     Active Substance: LEVOFLOXACIN
     Indication: INFECTION
     Dosage: ?          QUANTITY:1 TABLET(S);?
     Route: 048
  2. METRONIDAZOLE 500 MG TAB PLIVA SUB FOR FLAGLER 500 MG TAB [Suspect]
     Active Substance: METRONIDAZOLE
     Indication: APPENDICITIS
     Dosage: ?          QUANTITY:1 TABLET(S);?
     Route: 048
  3. LEVOFLOXACIN 500 MG ZYD SUB FOR LIVAQUIN 500 MG [Suspect]
     Active Substance: LEVOFLOXACIN
     Indication: APPENDICITIS
     Dosage: ?          QUANTITY:1 TABLET(S);?
     Route: 048
  4. METRONIDAZOLE 500 MG TAB PLIVA SUB FOR FLAGLER 500 MG TAB [Suspect]
     Active Substance: METRONIDAZOLE
     Indication: INFECTION
     Dosage: ?          QUANTITY:1 TABLET(S);?
     Route: 048

REACTIONS (9)
  - Myalgia [None]
  - Arthralgia [None]
  - Musculoskeletal pain [None]
  - Asthenia [None]
  - Dizziness [None]
  - Pain in extremity [None]
  - Loss of personal independence in daily activities [None]
  - Muscle spasms [None]
  - Tendon pain [None]

NARRATIVE: CASE EVENT DATE: 20180409
